FAERS Safety Report 10541657 (Version 1)
Quarter: 2014Q4

REPORT INFORMATION
  Report Type: Spontaneous
  Country: US (occurrence: US)
  Receive Date: 20141024
  Receipt Date: 20141024
  Transmission Date: 20150529
  Serious: No
  Sender: FDA-Public Use
  Company Number: US-ALLERGAN-1404114US

PATIENT
  Sex: Female
  Weight: 59 kg

DRUGS (1)
  1. ALPHAGAN P [Suspect]
     Active Substance: BRIMONIDINE TARTRATE
     Indication: GLAUCOMA
     Dosage: 2 GTT, BID
     Route: 047
     Dates: start: 2004, end: 2004

REACTIONS (4)
  - Inappropriate schedule of drug administration [Unknown]
  - Eye pruritus [Unknown]
  - Eye inflammation [Unknown]
  - Ocular hyperaemia [Unknown]
